FAERS Safety Report 7029981-7 (Version None)
Quarter: 2010Q4

REPORT INFORMATION
  Report Type: 
  Country: None (occurrence: None)
  Receive Date: 20101001
  Receipt Date: 20100614
  Transmission Date: 20110411
  Serious: Yes (Other)
  Sender: FDA-Public Use
  Company Number: OSCN-PR-1006S-0160

PATIENT
  Age: 58 Year
  Sex: Female

DRUGS (1)
  1. OMNISCAN [Suspect]
     Indication: PRODUCT USED FOR UNKNOWN INDICATION
     Dosage: 20 ML, SINGLE DOSE, I.V.
     Route: 042
     Dates: start: 20100607, end: 20100607

REACTIONS (5)
  - ANAPHYLACTOID REACTION [None]
  - CHEST DISCOMFORT [None]
  - PRURITUS [None]
  - THROAT TIGHTNESS [None]
  - URTICARIA [None]
